FAERS Safety Report 20351032 (Version 1)
Quarter: 2022Q1

REPORT INFORMATION
  Report Type: Spontaneous
  Country: US (occurrence: None)
  Receive Date: 20220118
  Receipt Date: 20220118
  Transmission Date: 20220423
  Serious: Yes (Hospitalization)
  Sender: FDA-Public Use
  Company Number: None

PATIENT
  Age: 42 Year
  Sex: Female

DRUGS (2)
  1. CASIRIVIMAB\IMDEVIMAB [Suspect]
     Active Substance: CASIRIVIMAB\IMDEVIMAB
     Indication: COVID-19
     Dosage: OTHER FREQUENCY : ONCE;?
     Route: 058
     Dates: start: 20220104, end: 20220104
  2. omeprazole (PriLOSEC) 20 mg capsule [Concomitant]

REACTIONS (10)
  - Sepsis [None]
  - Dyspnoea [None]
  - Abdominal pain [None]
  - Diarrhoea [None]
  - Diverticulitis [None]
  - Anaemia [None]
  - Colitis [None]
  - Headache [None]
  - Musculoskeletal stiffness [None]
  - Migraine [None]

NARRATIVE: CASE EVENT DATE: 20220107
